FAERS Safety Report 18318250 (Version 1)
Quarter: 2020Q3

REPORT INFORMATION
  Report Type: Spontaneous
  Country: DE (occurrence: DE)
  Receive Date: 20200928
  Receipt Date: 20200928
  Transmission Date: 20201103
  Serious: Yes (Hospitalization)
  Sender: FDA-Public Use
  Company Number: DE-TEVA-2020-DE-1831246

PATIENT
  Age: 82 Year
  Sex: Male

DRUGS (12)
  1. SIMVASTATIN. [Concomitant]
     Active Substance: SIMVASTATIN
     Dosage: .5 DOSAGE FORMS DAILY; 40 MG, 0?0?0.5?0
  2. SPIRONOLACTON [Suspect]
     Active Substance: SPIRONOLACTONE
     Dosage: 50 MILLIGRAM DAILY;  1?0?0?0
     Route: 065
  3. PANTOPRAZOL [Concomitant]
     Active Substance: PANTOPRAZOLE SODIUM
     Dosage: 20 MILLIGRAM DAILY;  1?0?0?0
  4. TORASEMID [Suspect]
     Active Substance: TORSEMIDE
     Dosage: 20 MILLIGRAM DAILY;  1?1?0?0
  5. ASS 100 [Concomitant]
     Active Substance: ASPIRIN
     Dosage: 100 MILLIGRAM DAILY;  0?1?0?0
  6. RAMIPRIL. [Concomitant]
     Active Substance: RAMIPRIL
     Dosage: 2.5 MILLIGRAM DAILY; 2.5 MG, 0?0?2.5?0
  7. PREGABALIN. [Suspect]
     Active Substance: PREGABALIN
     Dosage: 25 MILLIGRAM DAILY; 0?0?0?1
  8. HYLO?VISION SINE [Concomitant]
     Dosage: 3 DOSAGE FORMS DAILY; 1?1?1?0
     Route: 047
  9. TOUJEO [Concomitant]
     Active Substance: INSULIN GLARGINE
     Dosage: 50 IU (INTERNATIONAL UNIT) DAILY;  0?0?0?1
     Route: 058
  10. METAMIZOLE [Concomitant]
     Active Substance: METAMIZOLE
     Dosage: 500 MILLIGRAM DAILY;  1?0?0?0
  11. TILIDINE/NALOXONE [Suspect]
     Active Substance: NALOXONE HYDROCHLORIDE\TILIDINE HYDROCHLORIDE
     Dosage: 2 DOSAGE FORMS DAILY; 8|100 MG, 1?0?1?0
  12. TAMSULOSIN [Concomitant]
     Active Substance: TAMSULOSIN
     Dosage: .4 MILLIGRAM DAILY; 1?0?0?0

REACTIONS (3)
  - General physical health deterioration [Unknown]
  - Dizziness [Unknown]
  - Hyperglycaemia [Unknown]

NARRATIVE: CASE EVENT DATE: 20200707
